FAERS Safety Report 6317033-0 (Version None)
Quarter: 2009Q3

REPORT INFORMATION
  Report Type: 
  Country: None (occurrence: None)
  Receive Date: 20090820
  Receipt Date: 20090810
  Transmission Date: 20100115
  Serious: Yes (Life-Threatening, Hospitalization)
  Sender: FDA-Public Use
  Company Number: JP-AMGEN-US357755

PATIENT
  Sex: Male
  Weight: 62 kg

DRUGS (8)
  1. ENBREL [Suspect]
     Indication: RHEUMATOID ARTHRITIS
     Route: 058
     Dates: start: 20090406, end: 20090518
  2. ENBREL [Suspect]
     Route: 058
     Dates: start: 20090603, end: 20090629
  3. RHEUMATREX [Suspect]
     Indication: RHEUMATOID ARTHRITIS
     Route: 048
     Dates: start: 20090507, end: 20090809
  4. PREDONINE [Suspect]
     Indication: RHEUMATOID ARTHRITIS
     Route: 048
     Dates: start: 20090507, end: 20090809
  5. PREDONINE [Suspect]
     Dosage: 5 MG (2.5 TABLETS IN THE MORNING)
     Route: 048
     Dates: start: 20090301
  6. RISUMIC [Concomitant]
     Indication: ARRHYTHMIA
     Route: 048
     Dates: start: 20090507, end: 20090809
  7. MOBIC [Concomitant]
     Indication: RHEUMATOID ARTHRITIS
     Route: 048
     Dates: start: 20090507, end: 20090809
  8. TAKEPRON [Concomitant]
     Indication: GASTRITIS
     Route: 048
     Dates: start: 20090507, end: 20090809

REACTIONS (2)
  - LISTERIA SEPSIS [None]
  - MENINGITIS LISTERIA [None]
